FAERS Safety Report 5869033-2 (Version None)
Quarter: 2008Q3

REPORT INFORMATION
  Report Type: 
  Country: None (occurrence: None)
  Receive Date: 20080903
  Receipt Date: 20080829
  Transmission Date: 20090109
  Serious: Yes (Death, Hospitalization)
  Sender: FDA-Public Use
  Company Number: A0745758A

PATIENT
  Age: 62 Year
  Sex: Male
  Weight: 78 kg

DRUGS (4)
  1. SERETIDE [Suspect]
     Indication: RESPIRATORY DISORDER
     Route: 055
     Dates: start: 20071201, end: 20080812
  2. HALDOL [Concomitant]
     Dates: start: 19900101, end: 20080112
  3. CAPOTEN [Concomitant]
     Dates: start: 19900101, end: 20080112
  4. RIVOTRIL [Concomitant]
     Dates: start: 19900101, end: 20080112

REACTIONS (1)
  - THROMBOSIS [None]
